FAERS Safety Report 5458171-4 (Version None)
Quarter: 2007Q3

REPORT INFORMATION
  Report Type: 
  Country: None (occurrence: None)
  Receive Date: 20070917
  Receipt Date: 20070830
  Transmission Date: 20080115
  Serious: Yes (Other)
  Sender: FDA-Public Use
  Company Number: PHBS2007DE14377

PATIENT
  Age: 82 Year
  Sex: Female

DRUGS (2)
  1. VISUDYNE [Suspect]
     Indication: CHOROIDAL NEOVASCULARISATION
  2. BEVACIZUMAB [Suspect]

REACTIONS (7)
  - BLINDNESS [None]
  - DISEASE PROGRESSION [None]
  - FLUID RETENTION [None]
  - METAMORPHOPSIA [None]
  - RETINAL DEGENERATION [None]
  - RETINAL DISORDER [None]
  - SUBRETINAL FIBROSIS [None]
